FAERS Safety Report 17186461 (Version 1)
Quarter: 2019Q4

REPORT INFORMATION
  Report Type: Spontaneous
  Country: ES (occurrence: ES)
  Receive Date: 20191220
  Receipt Date: 20191220
  Transmission Date: 20200122
  Serious: Yes (Other)
  Sender: FDA-Public Use
  Company Number: ES-MYLANLABS-2019M1126556

PATIENT
  Age: 10 Month
  Sex: Male
  Weight: 10.25 kg

DRUGS (6)
  1. MOTILIUM [Concomitant]
     Active Substance: DOMPERIDONE
     Dosage: 2 MILLILITER, Q8H
     Route: 048
     Dates: start: 20190319
  2. MINOXIDIL. [Suspect]
     Active Substance: MINOXIDIL
     Indication: PRODUCT USED FOR UNKNOWN INDICATION
     Dosage: UNK
     Route: 048
     Dates: start: 20190214, end: 20190503
  3. DELTIUS [Concomitant]
     Active Substance: CHOLECALCIFEROL
     Indication: PROPHYLAXIS
     Dosage: 2 GTT DROPS, QD
     Route: 048
     Dates: start: 20180719
  4. OMEPRAZOLE. [Suspect]
     Active Substance: OMEPRAZOLE
     Indication: GASTROOESOPHAGEAL REFLUX DISEASE
     Dosage: CONCENTRACI?N 2 MG/ML
     Route: 048
     Dates: start: 20190214, end: 20190503
  5. MOTILIUM [Concomitant]
     Active Substance: DOMPERIDONE
     Indication: GASTROOESOPHAGEAL REFLUX DISEASE
     Dosage: 1.2 MILLILITER, Q8H
     Route: 048
     Dates: start: 20180910, end: 20181016
  6. OMEPRAZOL                          /00661201/ [Concomitant]
     Active Substance: OMEPRAZOLE
     Indication: GASTROOESOPHAGEAL REFLUX DISEASE
     Dosage: CONCENTRACI?N 2MG/ML
     Route: 048
     Dates: start: 20180809, end: 20190214

REACTIONS (2)
  - Hypertrichosis [Recovering/Resolving]
  - Product formulation issue [Recovered/Resolved]

NARRATIVE: CASE EVENT DATE: 20190214
